FAERS Safety Report 6371035-7 (Version None)
Quarter: 2009Q3

REPORT INFORMATION
  Report Type: 
  Country: None (occurrence: None)
  Receive Date: 20090923
  Receipt Date: 20090914
  Transmission Date: 20100115
  Serious: Yes (Hospitalization, Other)
  Sender: FDA-Public Use
  Company Number: JP-JNJFOC-20090903770

PATIENT
  Age: 27 Year
  Sex: Male

DRUGS (2)
  1. REMICADE [Suspect]
     Dosage: WEEK 2
     Route: 042
     Dates: start: 20090218
  2. REMICADE [Suspect]
     Indication: CROHN'S DISEASE
     Route: 042
     Dates: start: 20090218

REACTIONS (3)
  - INTESTINAL OBSTRUCTION [None]
  - PORTAL VENOUS GAS [None]
  - SEPTIC SHOCK [None]
